FAERS Safety Report 24047487 (Version 2)
Quarter: 2024Q3

REPORT INFORMATION
  Report Type: Spontaneous
  Country: DK (occurrence: DK)
  Receive Date: 20240703
  Receipt Date: 20240801
  Transmission Date: 20241017
  Serious: Yes (Death, Hospitalization, Other)
  Sender: DAIICHI
  Company Number: DK-DSJP-DSE-2024-126792

PATIENT
  Sex: Female
  Weight: 58 kg

DRUGS (1)
  1. ENHERTU [Suspect]
     Active Substance: FAM-TRASTUZUMAB DERUXTECAN-NXKI
     Indication: Breast cancer metastatic
     Dosage: 238.95 MG, ONCE EVERY 3 WK
     Route: 042
     Dates: start: 20230427, end: 20231017

REACTIONS (4)
  - Acute interstitial pneumonitis [Fatal]
  - Ascites [Unknown]
  - Dyspnoea [Unknown]
  - Asthenia [Unknown]

NARRATIVE: CASE EVENT DATE: 20230101
